FAERS Safety Report 6191040-3 (Version None)
Quarter: 2009Q2

REPORT INFORMATION
  Report Type: 
  Country: None (occurrence: None)
  Receive Date: 20090513
  Receipt Date: 20090501
  Transmission Date: 20091009
  Serious: Yes (Life-Threatening, Hospitalization)
  Sender: FDA-Public Use
  Company Number: POMP-1000536

PATIENT
  Age: 2 Year
  Sex: Female

DRUGS (3)
  1. MYOZYME [Suspect]
     Indication: GLYCOGEN STORAGE DISEASE TYPE II
     Dosage: 300 MG, Q2W, INTRAVENOUS; 20 MG/KG, INTRAVENOUS;  300 MG, QW,INTRAVENOUS
     Route: 042
     Dates: start: 20060920, end: 20090308
  2. MYOZYME [Suspect]
     Indication: GLYCOGEN STORAGE DISEASE TYPE II
     Dosage: 300 MG, Q2W, INTRAVENOUS; 20 MG/KG, INTRAVENOUS;  300 MG, QW,INTRAVENOUS
     Route: 042
     Dates: start: 20090308, end: 20090324
  3. MYOZYME [Suspect]
     Indication: GLYCOGEN STORAGE DISEASE TYPE II
     Dosage: 300 MG, Q2W, INTRAVENOUS; 20 MG/KG, INTRAVENOUS;  300 MG, QW,INTRAVENOUS
     Route: 042
     Dates: start: 20090324

REACTIONS (8)
  - BACTERAEMIA [None]
  - CARDIOPULMONARY FAILURE [None]
  - FEBRILE CONVULSION [None]
  - HYPERHIDROSIS [None]
  - INFLUENZA [None]
  - INFUSION RELATED REACTION [None]
  - SYSTEMIC CANDIDA [None]
  - VOMITING [None]
